FAERS Safety Report 7508195-8 (Version None)
Quarter: 2011Q2

REPORT INFORMATION
  Report Type: 
  Country: None (occurrence: None)
  Receive Date: 20110527
  Receipt Date: 20110309
  Transmission Date: 20111010
  Serious: No
  Sender: FDA-Public Use
  Company Number: US-MYLANLABS-2011S1002510

PATIENT
  Age: 87 Year
  Sex: Female

DRUGS (4)
  1. LANSOPRAZOLE [Suspect]
     Route: 048
  2. LANSOPRAZOLE [Suspect]
     Route: 048
  3. LANSOPRAZOLE [Suspect]
     Indication: HIATUS HERNIA
     Route: 048
     Dates: end: 20101227
  4. LANSOPRAZOLE [Suspect]
     Indication: DYSPEPSIA
     Route: 048
     Dates: end: 20101227

REACTIONS (5)
  - GASTROOESOPHAGEAL REFLUX DISEASE [None]
  - NAUSEA [None]
  - DRUG INEFFECTIVE [None]
  - ERUCTATION [None]
  - VOMITING [None]
